FAERS Safety Report 23142307 (Version 1)
Quarter: 2023Q4

REPORT INFORMATION
  Report Type: Spontaneous
  Country: DE (occurrence: DE)
  Receive Date: 20231103
  Receipt Date: 20231103
  Transmission Date: 20240110
  Serious: Yes (Other)
  Sender: FDA-Public Use
  Company Number: DE-EPICPHARMA-DE-2023EPCLIT01573

PATIENT
  Age: 76 Year
  Sex: Female

DRUGS (8)
  1. AMIODARONE HYDROCHLORIDE [Suspect]
     Active Substance: AMIODARONE HYDROCHLORIDE
     Indication: Acute myocardial infarction
     Dosage: 3 X 200 MG/D
     Route: 065
  2. AMIODARONE HYDROCHLORIDE [Suspect]
     Active Substance: AMIODARONE HYDROCHLORIDE
     Dosage: REDUCTION TO 1 X 200 MG/D AFTER 14 DAYS
     Route: 065
  3. CLOPIDOGREL [Suspect]
     Active Substance: CLOPIDOGREL BISULFATE
     Indication: Acute myocardial infarction
     Dosage: 1 X 75 MG/D
     Route: 065
  4. APIXABAN [Concomitant]
     Active Substance: APIXABAN
     Indication: Acute myocardial infarction
     Dosage: 2 X 2.5 MG/D
     Route: 065
  5. APIXABAN [Concomitant]
     Active Substance: APIXABAN
     Indication: Atrial fibrillation
     Dosage: 2 X 5 MG/D
     Route: 065
  6. METOPROLOL [Concomitant]
     Active Substance: METOPROLOL
     Indication: Product used for unknown indication
     Route: 065
  7. AMLODIPINE [Concomitant]
     Active Substance: AMLODIPINE BESYLATE
     Indication: Product used for unknown indication
     Route: 065
  8. RAMIPRIL [Concomitant]
     Active Substance: RAMIPRIL
     Indication: Product used for unknown indication
     Route: 065

REACTIONS (2)
  - Cutaneous vasculitis [Recovered/Resolved]
  - Product use in unapproved indication [Unknown]
